FAERS Safety Report 16878840 (Version 1)
Quarter: 2019Q4

REPORT INFORMATION
  Report Type: Spontaneous
  Country: US (occurrence: US)
  Receive Date: 20191002
  Receipt Date: 20191002
  Transmission Date: 20200122
  Serious: No
  Sender: FDA-Public Use
  Company Number: US-ALNYLAM PHARMACEUTICALS, INC.-ALN-2019-000143

PATIENT
  Sex: Female

DRUGS (1)
  1. ONPATTRO [Suspect]
     Active Substance: PATISIRAN SODIUM
     Indication: HEREDITARY NEUROPATHIC AMYLOIDOSIS
     Route: 042

REACTIONS (7)
  - Chest pain [Recovered/Resolved]
  - Infusion related reaction [Unknown]
  - Back pain [Recovered/Resolved]
  - Infusion related reaction [Recovered/Resolved]
  - Pain [Unknown]
  - Fatigue [Unknown]
  - Dizziness [Unknown]
